FAERS Safety Report 5887752-9 (Version None)
Quarter: 2008Q3

REPORT INFORMATION
  Report Type: 
  Country: None (occurrence: None)
  Receive Date: 20080916
  Receipt Date: 20080910
  Transmission Date: 20090109
  Serious: Yes (Hospitalization)
  Sender: FDA-Public Use
  Company Number: 2008AL010375

PATIENT
  Age: 61 Year
  Sex: Male

DRUGS (3)
  1. DIGOXIN [Suspect]
     Indication: ARRHYTHMIA
     Dosage: 0.125MG,DAILY,PO
     Route: 048
     Dates: start: 20060101, end: 20080504
  2. LISINOPRIL [Concomitant]
  3. METOPROLOL [Concomitant]

REACTIONS (3)
  - FEELING ABNORMAL [None]
  - HEART INJURY [None]
  - MYOCARDIAL INFARCTION [None]
